FAERS Safety Report 24550984 (Version 8)
Quarter: 2025Q4

REPORT INFORMATION
  Report Type: Report from Study
  Country: AU (occurrence: AU)
  Receive Date: 20241025
  Receipt Date: 20251104
  Transmission Date: 20260118
  Serious: Yes (Death, Hospitalization, Other)
  Sender: NOVARTIS
  Company Number: AU-002147023-NVSC2024AU200279

PATIENT
  Sex: Male

DRUGS (5)
  1. COSENTYX [Suspect]
     Active Substance: SECUKINUMAB
     Indication: Psoriatic arthropathy
     Dosage: UNK
     Route: 058
     Dates: start: 20240823
  2. COSENTYX [Suspect]
     Active Substance: SECUKINUMAB
     Dosage: UNK
     Route: 065
     Dates: start: 20241027
  3. COSENTYX [Suspect]
     Active Substance: SECUKINUMAB
     Dosage: UNK PREVIOUS DOSE
     Route: 065
     Dates: start: 202505
  4. COSENTYX [Suspect]
     Active Substance: SECUKINUMAB
     Dosage: UNK
     Route: 065
     Dates: start: 20250707
  5. COSENTYX [Suspect]
     Active Substance: SECUKINUMAB
     Dosage: 300 MG ( IT WORKS OUT I WAS ABOUT 10 DAYS LATE FOR THE 300MG COSENTYX DOSE.)
     Route: 065

REACTIONS (20)
  - Sepsis [Fatal]
  - Pneumonia [Fatal]
  - Norovirus infection [Recovering/Resolving]
  - Nausea [Recovering/Resolving]
  - Vomiting [Recovering/Resolving]
  - Abdominal pain [Recovering/Resolving]
  - Renal function test abnormal [Unknown]
  - Inflammatory marker increased [Unknown]
  - Fall [Recovering/Resolving]
  - Lumbar vertebral fracture [Recovering/Resolving]
  - Loss of control of legs [Unknown]
  - Psoriatic arthropathy [Unknown]
  - Skin laceration [Recovering/Resolving]
  - Inappropriate schedule of product administration [Unknown]
  - Hypoaesthesia [Unknown]
  - Contusion [Unknown]
  - Asthenia [Unknown]
  - Fatigue [Unknown]
  - Drug effect less than expected [Unknown]
  - Blood uric acid increased [Unknown]

NARRATIVE: CASE EVENT DATE: 20240101
